FAERS Safety Report 7771864 (Version 4)
Quarter: 2014Q2

REPORT INFORMATION
  Report Type: Spontaneous
  Country: PT (occurrence: PT)
  Receive Date: 20110124
  Receipt Date: 20140613
  Transmission Date: 20141212
  Serious: Yes (Other)
  Sender: FDA-Public Use
  Company Number: PHHY2011PT02018

PATIENT
  Age: 13 Year
  Sex: Female

DRUGS (3)
  1. CICLOSPORIN [Suspect]
     Indication: DERMATITIS ATOPIC
     Route: 048
  2. GENTAMICIN [Suspect]
  3. FLUCLOXACILLIN [Concomitant]

REACTIONS (8)
  - Liver disorder [Unknown]
  - Alanine aminotransferase increased [Recovered/Resolved]
  - Aspartate aminotransferase increased [Recovered/Resolved]
  - Renal impairment [Unknown]
  - Blood urea increased [Recovered/Resolved]
  - Herpes virus infection [Unknown]
  - Blood immunoglobulin E increased [Unknown]
  - Drug interaction [Unknown]
